FAERS Safety Report 7955734-9 (Version None)
Quarter: 2011Q4

REPORT INFORMATION
  Report Type: 
  Country: None (occurrence: None)
  Receive Date: 20111204
  Receipt Date: 20111022
  Transmission Date: 20120403
  Serious: Yes (Other)
  Sender: FDA-Public Use
  Company Number: PHHY2011ES104876

PATIENT

DRUGS (1)
  1. PAMIDRONATE DISODIUM [Suspect]
     Indication: OSTEOPOROSIS
     Route: 042

REACTIONS (3)
  - PRURITUS [None]
  - DYSPNOEA [None]
  - INFUSION RELATED REACTION [None]
